FAERS Safety Report 9642641 (Version 1)
Quarter: 2013Q4

REPORT INFORMATION
  Report Type: Spontaneous
  Country: US (occurrence: US)
  Receive Date: 20131024
  Receipt Date: 20131024
  Transmission Date: 20140711
  Serious: No
  Sender: FDA-Public Use
  Company Number: US-PFIZER INC-2013300523

PATIENT
  Age: 61 Year
  Sex: Male
  Weight: 78.01 kg

DRUGS (2)
  1. CELEBREX [Suspect]
     Indication: ANTIINFLAMMATORY THERAPY
     Dosage: 200 MG, 2X/DAY
     Route: 048
  2. CELEBREX [Suspect]
     Indication: STAPHYLOCOCCAL SKIN INFECTION

REACTIONS (3)
  - Expired drug administered [Unknown]
  - Off label use [Unknown]
  - Cough [Unknown]
